FAERS Safety Report 9106369 (Version 2)
Quarter: 2013Q1

REPORT INFORMATION
  Report Type: Spontaneous
  Country: US (occurrence: US)
  Receive Date: 20130221
  Receipt Date: 20130228
  Transmission Date: 20140127
  Serious: Yes (Death)
  Sender: FDA-Public Use
  Company Number: US-GILEAD-2013-0070195

PATIENT
  Age: 66 Year
  Sex: Female

DRUGS (3)
  1. LETAIRIS [Suspect]
     Indication: COR PULMONALE CHRONIC
     Dosage: 10 MG, QD
     Route: 048
     Dates: start: 20110708, end: 20130213
  2. LETAIRIS [Suspect]
     Indication: SCLERODERMA
  3. ADCIRCA [Concomitant]

REACTIONS (1)
  - Cardiac arrest [Fatal]
